FAERS Safety Report 17676139 (Version 1)
Quarter: 2020Q2

REPORT INFORMATION
  Report Type: Spontaneous
  Country: CN (occurrence: CN)
  Receive Date: 20200416
  Receipt Date: 20200416
  Transmission Date: 20200714
  Serious: Yes (Other)
  Sender: FDA-Public Use
  Company Number: CN-ROCHE-2583062

PATIENT
  Age: 47 Year
  Sex: Female

DRUGS (3)
  1. CARBOPLATIN. [Concomitant]
     Active Substance: CARBOPLATIN
     Indication: BREAST CANCER
     Dosage: FIRST DOSE AT 8MG/KG, AND THEN 6MG/KG
     Route: 065
     Dates: start: 201910, end: 202002
  2. HERCEPTIN [Suspect]
     Active Substance: TRASTUZUMAB
     Indication: BREAST CANCER
     Dosage: FIRST DOSE AT 8MG/KG, AND THEN 6MG/KG
     Route: 065
     Dates: start: 201910, end: 202002
  3. DOCETAXEL. [Concomitant]
     Active Substance: DOCETAXEL
     Indication: BREAST CANCER
     Dosage: FIRST DOSE AT 8MG/KG, AND THEN 6MG/KG
     Route: 065
     Dates: start: 201910, end: 202002

REACTIONS (2)
  - Bone marrow failure [Unknown]
  - Gastrointestinal disorder [Unknown]
